FAERS Safety Report 6383452-X (Version None)
Quarter: 2009Q4

REPORT INFORMATION
  Report Type: 
  Country: None (occurrence: None)
  Receive Date: 20091001
  Receipt Date: 20090924
  Transmission Date: 20100525
  Serious: Yes (Other)
  Sender: FDA-Public Use
  Company Number: PHHY2009DE41523

PATIENT
  Sex: Male

DRUGS (1)
  1. EXELON [Suspect]
     Dosage: 9.5MG 24 HOURLY
     Route: 062
     Dates: start: 20090821, end: 20090921

REACTIONS (2)
  - DELIRIUM [None]
  - HALLUCINATION [None]
